FAERS Safety Report 24529466 (Version 2)
Quarter: 2024Q4

REPORT INFORMATION
  Report Type: Spontaneous
  Country: SE (occurrence: SE)
  Receive Date: 20241021
  Receipt Date: 20241029
  Transmission Date: 20250115
  Serious: Yes (Life-Threatening, Other)
  Sender: OTSUKA
  Company Number: None

PATIENT
  Age: 26 Year
  Sex: Male
  Weight: 73 kg

DRUGS (8)
  1. ABILIFY [Suspect]
     Active Substance: ARIPIPRAZOLE
     Indication: Acute psychosis
     Dosage: 1.3 ML (SINGLE INJECTION)
     Route: 030
     Dates: start: 20241010, end: 20241010
  2. ABILIFY [Suspect]
     Active Substance: ARIPIPRAZOLE
     Indication: Delusion
  3. QUETIAPINE [Concomitant]
     Active Substance: QUETIAPINE
     Indication: Product used for unknown indication
     Dosage: 100 MG, 8 HOURS
     Route: 048
     Dates: start: 20240924
  4. LITHIUM SULFATE [Concomitant]
     Active Substance: LITHIUM SULFATE
     Indication: Product used for unknown indication
     Dosage: 3+2, ANHYDROUS
     Route: 048
     Dates: start: 20240924
  5. IMOVANE [Concomitant]
     Active Substance: ZOPICLONE
     Indication: Product used for unknown indication
     Dosage: 1 PRN
     Route: 048
     Dates: start: 20240924
  6. BRICANYL [Concomitant]
     Active Substance: TERBUTALINE SULFATE
     Indication: Product used for unknown indication
     Dosage: 1-2 INH VB
     Route: 055
     Dates: start: 202208
  7. AKINETON [Concomitant]
     Active Substance: BIPERIDEN HYDROCHLORIDE
     Indication: Product used for unknown indication
     Dosage: 1X2
     Route: 048
     Dates: start: 20240919
  8. MELATONIN [Concomitant]
     Active Substance: MELATONIN
     Indication: Product used for unknown indication
     Dosage: UNK (1TN)
     Route: 048
     Dates: start: 20240616

REACTIONS (2)
  - Anaphylactic reaction [Recovered/Resolved]
  - Product use in unapproved indication [Unknown]

NARRATIVE: CASE EVENT DATE: 20241010
